FAERS Safety Report 4630339-6 (Version None)
Quarter: 2005Q2

REPORT INFORMATION
  Report Type: 
  Country: None (occurrence: None)
  Receive Date: 20050408
  Receipt Date: 20050328
  Transmission Date: 20051028
  Serious: Yes (Death)
  Sender: FDA-Public Use
  Company Number: US-BRISTOL-MYERS SQUIBB COMPANY-12913588

PATIENT
  Sex: Male

DRUGS (2)
  1. MEGACE [Suspect]
  2. SUSTIVA [Suspect]

REACTIONS (1)
  - DEATH [None]
